FAERS Safety Report 5141130-9 (Version None)
Quarter: 2006Q4

REPORT INFORMATION
  Report Type: 
  Country: None (occurrence: None)
  Receive Date: 20061026
  Receipt Date: 20061020
  Transmission Date: 20070319
  Serious: Yes (Life-Threatening)
  Sender: FDA-Public Use
  Company Number: TCI2006A03735

PATIENT
  Age: 86 Year
  Sex: Male

DRUGS (2)
  1. LEUPROLIDE ACETATE [Suspect]
     Indication: PROSTATE CANCER
     Dosage: 3.75 MG (3.75 MG, 1 IN 28 D) SUBCUTANEOUS
     Route: 058
     Dates: start: 20040814, end: 20060823
  2. HARNAL D (TAMSULOSIN HYDROCHLORIDE) (TABLETS) [Concomitant]

REACTIONS (9)
  - ANOREXIA [None]
  - BRAIN STEM ISCHAEMIA [None]
  - FACIAL PALSY [None]
  - FAECES DISCOLOURED [None]
  - HAEMORRHAGE SUBCUTANEOUS [None]
  - HYPOAESTHESIA [None]
  - IDIOPATHIC THROMBOCYTOPENIC PURPURA [None]
  - MARROW HYPERPLASIA [None]
  - MYELODYSPLASTIC SYNDROME [None]
